FAERS Safety Report 7364150-2 (Version None)
Quarter: 2011Q1

REPORT INFORMATION
  Report Type: 
  Country: None (occurrence: None)
  Receive Date: 20110321
  Receipt Date: 20110312
  Transmission Date: 20110831
  Serious: Yes (Death, Hospitalization, Other)
  Sender: FDA-Public Use
  Company Number: DE-ABBOTT-11P-062-0697323-00

PATIENT
  Sex: Female

DRUGS (10)
  1. AMPROLOL [Concomitant]
     Indication: PRODUCT USED FOR UNKNOWN INDICATION
     Dates: start: 20110111, end: 20110114
  2. DORMICUM [Concomitant]
     Indication: PRODUCT USED FOR UNKNOWN INDICATION
     Dates: start: 20110111, end: 20110114
  3. PANTOZOL [Concomitant]
     Indication: PRODUCT USED FOR UNKNOWN INDICATION
     Dates: start: 20110111, end: 20110114
  4. JONOSTERIL [Concomitant]
     Indication: PRODUCT USED FOR UNKNOWN INDICATION
     Dates: start: 20110111, end: 20110114
  5. SEVOFLURANE [Suspect]
     Indication: PRODUCT USED FOR UNKNOWN INDICATION
  6. LASIX [Concomitant]
     Indication: PRODUCT USED FOR UNKNOWN INDICATION
     Dates: start: 20110112, end: 20110114
  7. INSULIN [Concomitant]
     Indication: PRODUCT USED FOR UNKNOWN INDICATION
     Dates: start: 20110111, end: 20110114
  8. SUFENTANYL [Concomitant]
     Indication: PRODUCT USED FOR UNKNOWN INDICATION
     Dates: start: 20110111, end: 20110114
  9. MEROPENEM [Concomitant]
     Indication: PRODUCT USED FOR UNKNOWN INDICATION
     Dates: start: 20110112, end: 20110114
  10. NORADRENALIN [Concomitant]
     Indication: PRODUCT USED FOR UNKNOWN INDICATION
     Dates: start: 20110111, end: 20110114

REACTIONS (20)
  - LIVER FUNCTION TEST ABNORMAL [None]
  - RENAL FAILURE [None]
  - PERITONEAL ADHESIONS [None]
  - HYPERNATRAEMIA [None]
  - HAEMATOMA [None]
  - BLOOD CATECHOLAMINES INCREASED [None]
  - CIRCULATORY COLLAPSE [None]
  - OPERATIVE HAEMORRHAGE [None]
  - HYPOGLYCAEMIA [None]
  - NEOPLASM MALIGNANT [None]
  - MULTI-ORGAN DISORDER [None]
  - HAEMOGLOBIN DECREASED [None]
  - HYPERKALAEMIA [None]
  - ACUTE HEPATIC FAILURE [None]
  - HAEMORRHAGE [None]
  - LACTIC ACIDOSIS [None]
  - HEPATOMEGALY [None]
  - HYPERGLYCAEMIA [None]
  - COAGULOPATHY [None]
  - LIVER DISORDER [None]
